FAERS Safety Report 7137970-7 (Version None)
Quarter: 2010Q4

REPORT INFORMATION
  Report Type: 
  Country: None (occurrence: None)
  Receive Date: 20101103
  Receipt Date: 20100817
  Transmission Date: 20110411
  Serious: Yes (Hospitalization)
  Sender: FDA-Public Use
  Company Number: 2010S1001276

PATIENT
  Age: 68 Year
  Sex: Male
  Weight: 100 kg

DRUGS (3)
  1. CUBICIN [Suspect]
     Indication: CELLULITIS
     Dosage: 4 MG/KG; Q24H; IV
     Route: 042
     Dates: start: 20100712, end: 20100715
  2. METFORMIN HYDROCHLORIDE [Concomitant]
  3. CORASPIN [Concomitant]

REACTIONS (1)
  - BLOOD CREATINE PHOSPHOKINASE INCREASED [None]
